FAERS Safety Report 15007043 (Version 1)
Quarter: 2018Q2

REPORT INFORMATION
  Report Type: Report from Study
  Country: US (occurrence: US)
  Receive Date: 20180613
  Receipt Date: 20180613
  Transmission Date: 20180711
  Serious: No
  Sender: FDA-Public Use
  Company Number: US-US WORLDMEDS, LLC-USW201804-000624

PATIENT
  Age: 56 Year
  Sex: Male
  Weight: 58.96 kg

DRUGS (5)
  1. SERTRALINE [Concomitant]
     Active Substance: SERTRALINE HYDROCHLORIDE
  2. APOKYN [Suspect]
     Active Substance: APOMORPHINE HYDROCHLORIDE
     Indication: PARKINSON^S DISEASE
     Route: 058
     Dates: start: 20180417, end: 20180417
  3. CLONAZEPAM. [Concomitant]
     Active Substance: CLONAZEPAM
  4. RYTARY [Concomitant]
     Active Substance: CARBIDOPA\LEVODOPA
  5. SINEMET [Concomitant]
     Active Substance: CARBIDOPA\LEVODOPA
     Route: 048

REACTIONS (8)
  - Hyperhidrosis [Recovered/Resolved]
  - Malaise [Unknown]
  - Vomiting [Unknown]
  - Headache [Unknown]
  - Nausea [Recovered/Resolved]
  - Hypotension [Unknown]
  - Asthenia [Unknown]
  - Poverty of speech [Unknown]

NARRATIVE: CASE EVENT DATE: 20180417
